FAERS Safety Report 17983747 (Version 1)
Quarter: 2020Q3

REPORT INFORMATION
  Report Type: Spontaneous
  Country: US (occurrence: US)
  Receive Date: 20200705
  Receipt Date: 20200705
  Transmission Date: 20201103
  Serious: Yes (Other)
  Sender: FDA-Public Use
  Company Number: None

PATIENT
  Age: 57 Year
  Sex: Female
  Weight: 56.25 kg

DRUGS (1)
  1. POLYMYXIN B SULFATE AND TRIMETHOPRIM [Suspect]
     Active Substance: POLYMYXIN B SULFATE\TRIMETHOPRIM SULFATE
     Indication: EYE INFECTION BACTERIAL
     Dosage: ?          QUANTITY:1 DROP(S);?
     Route: 047
     Dates: start: 20200702, end: 20200704

REACTIONS (4)
  - Flushing [None]
  - Arthralgia [None]
  - Hyperhidrosis [None]
  - Palpitations [None]

NARRATIVE: CASE EVENT DATE: 20200703
